FAERS Safety Report 26130826 (Version 1)
Quarter: 2025Q4

REPORT INFORMATION
  Report Type: Spontaneous
  Country: US (occurrence: None)
  Receive Date: 20251208
  Receipt Date: 20251208
  Transmission Date: 20260118
  Serious: No
  Sender: FDA-CTU
  Company Number: None

PATIENT
  Age: 69 Year
  Sex: Male
  Weight: 94 kg

DRUGS (1)
  1. EMPAGLIFLOZIN\METFORMIN HYDROCHLORIDE [Suspect]
     Active Substance: EMPAGLIFLOZIN\METFORMIN HYDROCHLORIDE
     Indication: Diabetes mellitus
     Dosage: 2 TAB AM PO ??FREQUENCY : AFTER MEALS?
     Route: 048
     Dates: start: 20230215, end: 20251027

REACTIONS (1)
  - Polycythaemia [None]

NARRATIVE: CASE EVENT DATE: 20251027
